FAERS Safety Report 6018025-1 (Version None)
Quarter: 2008Q4

REPORT INFORMATION
  Report Type: 
  Country: None (occurrence: None)
  Receive Date: 20081223
  Receipt Date: 20081218
  Transmission Date: 20090506
  Serious: Yes (Life-Threatening, Hospitalization)
  Sender: FDA-Public Use
  Company Number: B0551435A

PATIENT
  Age: 63 Year
  Sex: Male

DRUGS (1)
  1. AUGMENTIN '125' [Suspect]
     Indication: PAROTID ABSCESS
     Dosage: 3.6G THREE TIMES PER DAY
     Route: 048
     Dates: start: 20080609, end: 20080609

REACTIONS (2)
  - GASTROENTERITIS [None]
  - HYPOVOLAEMIC SHOCK [None]
